FAERS Safety Report 8824016 (Version 1)
Quarter: 2012Q4

REPORT INFORMATION
  Report Type: 
  Country: US (occurrence: US)
  Receive Date: 20121003
  Receipt Date: 20121003
  Transmission Date: 20130627
  Serious: No
  Sender: FDA-Public Use
  Company Number: US-009507513-1210USA000834

PATIENT
  Age: 49 Year
  Sex: Male

DRUGS (4)
  1. JANUMET [Suspect]
     Dosage: UNK
     Route: 048
  2. ACTOS [Suspect]
  3. VICTOZA [Suspect]
     Dosage: 0.6 mg, qd
     Route: 058
  4. VICTOZA [Suspect]
     Dosage: 1.2 mg, qd
     Route: 058

REACTIONS (2)
  - Injection site haematoma [Unknown]
  - Tinea cruris [Unknown]
